FAERS Safety Report 9104840 (Version 1)
Quarter: 2013Q1

REPORT INFORMATION
  Report Type: Spontaneous
  Country: FR (occurrence: FR)
  Receive Date: 20130219
  Receipt Date: 20130219
  Transmission Date: 20140127
  Serious: Yes (Hospitalization, Other)
  Sender: FDA-Public Use
  Company Number: FR-JNJFOC-20130206838

PATIENT
  Age: 66 Year
  Sex: Male

DRUGS (6)
  1. XARELTO [Suspect]
     Indication: CEREBROVASCULAR ACCIDENT PROPHYLAXIS
     Route: 048
     Dates: start: 20121015, end: 20121116
  2. XARELTO [Suspect]
     Indication: ATRIAL FIBRILLATION
     Route: 048
     Dates: start: 20121015, end: 20121116
  3. PREVISCAN (FLUINDIONE) [Concomitant]
     Indication: CARDIAC ARREST
     Route: 048
     Dates: end: 20121015
  4. PREVISCAN (FLUINDIONE) [Concomitant]
     Indication: CARDIAC ARREST
     Route: 048
     Dates: start: 201211
  5. PREVISCAN (FLUINDIONE) [Concomitant]
     Indication: ATRIAL FIBRILLATION
     Route: 048
     Dates: start: 201211
  6. PREVISCAN (FLUINDIONE) [Concomitant]
     Indication: ATRIAL FIBRILLATION
     Route: 048
     Dates: end: 20121015

REACTIONS (1)
  - Purpura [Recovering/Resolving]
